FAERS Safety Report 12562601 (Version 1)
Quarter: 2016Q3

REPORT INFORMATION
  Report Type: Spontaneous
  Country: AU (occurrence: DE)
  Receive Date: 20160715
  Receipt Date: 20160715
  Transmission Date: 20161109
  Serious: Yes (Hospitalization, Other)
  Sender: FDA-Public Use
  Company Number: AU-BRISTOL-MYERS SQUIBB COMPANY-20705109

PATIENT
  Age: 33 Year
  Sex: Female

DRUGS (2)
  1. ARIPIPRAZOLE. [Suspect]
     Active Substance: ARIPIPRAZOLE
     Indication: PRODUCT USED FOR UNKNOWN INDICATION
     Dosage: INCREASED TO 15MG AFTER 5 DAYS
     Route: 065
  2. MIRTAZAPINE. [Concomitant]
     Active Substance: MIRTAZAPINE
     Indication: DEPRESSIVE SYMPTOM
     Dosage: INCREASED TO 30MG.
     Route: 065

REACTIONS (1)
  - Psychotic disorder [Unknown]
